FAERS Safety Report 5159419-6 (Version None)
Quarter: 2006Q4

REPORT INFORMATION
  Report Type: 
  Country: None (occurrence: None)
  Receive Date: 20061122
  Receipt Date: 20061122
  Transmission Date: 20070319
  Serious: Yes (Other)
  Sender: FDA-Public Use
  Company Number: None

PATIENT
  Age: 11 Year
  Sex: Male
  Weight: 26.3086 kg

DRUGS (3)
  1. FLUVOXAMINE MALEATE [Suspect]
     Indication: FEAR
     Dosage: 25 MG TWICE A DAY PO
     Route: 048
     Dates: start: 20061001, end: 20061024
  2. CONCERTA [Concomitant]
  3. GABITRIL [Concomitant]

REACTIONS (7)
  - APATHY [None]
  - DECREASED APPETITE [None]
  - DEPRESSION [None]
  - EDUCATIONAL PROBLEM [None]
  - IRRITABILITY [None]
  - SLEEP DISORDER [None]
  - STOMACH DISCOMFORT [None]
